FAERS Safety Report 14895267 (Version 1)
Quarter: 2018Q2

REPORT INFORMATION
  Report Type: Spontaneous
  Country: FR (occurrence: FR)
  Receive Date: 20180515
  Receipt Date: 20180515
  Transmission Date: 20180711
  Serious: Yes (Other)
  Sender: FDA-Public Use
  Company Number: FR-MERCK KGAA-2047738

PATIENT
  Age: 64 Year
  Sex: Female
  Weight: 69 kg

DRUGS (2)
  1. NOVOTHYROX [Suspect]
     Active Substance: LEVOTHYROXINE SODIUM
     Indication: POST PROCEDURAL HYPOTHYROIDISM
     Dates: start: 201704
  2. NOVOTHYROX [Suspect]
     Active Substance: LEVOTHYROXINE SODIUM
     Dates: start: 201704

REACTIONS (34)
  - Loss of personal independence in daily activities [None]
  - Fatigue [None]
  - Skin disorder [Recovering/Resolving]
  - Thyroglobulin decreased [None]
  - Dizziness [Recovering/Resolving]
  - Loss of consciousness [None]
  - Arthralgia [None]
  - Feeling cold [None]
  - Asthenia [None]
  - Feeling abnormal [None]
  - Terminal insomnia [None]
  - Herpes zoster [Recovering/Resolving]
  - Pain [None]
  - Gait disturbance [None]
  - Impaired driving ability [None]
  - Blood pressure decreased [None]
  - Headache [Recovering/Resolving]
  - Blood thyroid stimulating hormone decreased [None]
  - Tremor [None]
  - Chills [None]
  - Crying [None]
  - Bedridden [None]
  - Social avoidant behaviour [None]
  - General physical health deterioration [None]
  - Anger [None]
  - Tachycardia [None]
  - Irritability [None]
  - Disturbance in attention [Recovering/Resolving]
  - Psychiatric symptom [None]
  - Memory impairment [Recovering/Resolving]
  - Alopecia [Recovering/Resolving]
  - Eczema [None]
  - Myalgia [Recovering/Resolving]
  - Nausea [Recovering/Resolving]

NARRATIVE: CASE EVENT DATE: 201704
